FAERS Safety Report 23709113 (Version 3)
Quarter: 2024Q2

REPORT INFORMATION
  Report Type: Spontaneous
  Country: SE (occurrence: SE)
  Receive Date: 20240404
  Receipt Date: 20240418
  Transmission Date: 20240715
  Serious: Yes (Death)
  Sender: FDA-Public Use
  Company Number: SE-ABBVIE-5697062

PATIENT
  Age: 78 Year
  Sex: Male

DRUGS (4)
  1. EPCORITAMAB [Suspect]
     Active Substance: EPCORITAMAB
     Indication: B-cell small lymphocytic lymphoma
     Dosage: ESCALATION DOSE 1
     Route: 058
     Dates: start: 20240226, end: 20240226
  2. EPCORITAMAB [Suspect]
     Active Substance: EPCORITAMAB
     Dosage: ESCALATION DOSE 2
     Route: 058
     Dates: start: 20240304, end: 20240304
  3. EPCORITAMAB [Suspect]
     Active Substance: EPCORITAMAB
     Dosage: 48 MG 48 MG, THIRD DOSE - FIRST FULL DOSE, TOTAL;
     Route: 058
     Dates: start: 20240311, end: 20240311
  4. LENALIDOMID ZENTIVA [Concomitant]
     Indication: Product used for unknown indication
     Dosage: DOSE: 1 TABLET ONCE DAILY DOSE: 7.5 MG
     Dates: start: 20240227, end: 20240311

REACTIONS (4)
  - Haemorrhage [Fatal]
  - Melaena [Fatal]
  - Cytokine release syndrome [Fatal]
  - Immune effector cell-associated neurotoxicity syndrome [Fatal]

NARRATIVE: CASE EVENT DATE: 20240311
